FAERS Safety Report 9188553 (Version 1)
Quarter: 2013Q1

REPORT INFORMATION
  Report Type: Report from Study
  Country: GB (occurrence: GB)
  Receive Date: 20130325
  Receipt Date: 20130325
  Transmission Date: 20140127
  Serious: Yes (Death)
  Sender: FDA-Public Use
  Company Number: GB-CELGENEUS-167-C4047-13032949

PATIENT
  Age: 52 Year
  Sex: Female

DRUGS (1)
  1. CC-4047 [Suspect]
     Indication: PRODUCT USED FOR UNKNOWN INDICATION
     Route: 048
     Dates: end: 201205

REACTIONS (1)
  - Disease progression [Fatal]
